FAERS Safety Report 21675110 (Version 1)
Quarter: 2022Q4

REPORT INFORMATION
  Report Type: Spontaneous
  Country: US (occurrence: US)
  Receive Date: 20221202
  Receipt Date: 20221202
  Transmission Date: 20230113
  Serious: No
  Sender: FDA-Public Use
  Company Number: US-ANIPHARMA-2022-US-023195

PATIENT
  Age: 79 Year
  Sex: Female
  Weight: 57.15 kg

DRUGS (5)
  1. VANCOMYCIN HYDROCHLORIDE [Suspect]
     Active Substance: VANCOMYCIN HYDROCHLORIDE
     Indication: Clostridium difficile colitis
     Dosage: TAKE ONE 125MG CAPSULE 4 TIMES A DAY.
     Route: 048
     Dates: start: 20220920, end: 20220923
  2. unspecified allergy pill [Concomitant]
  3. LUMIGAN [Concomitant]
     Active Substance: BIMATOPROST
  4. PREDNISOLONE [Concomitant]
     Active Substance: PREDNISOLONE
  5. METOPROLOL [Concomitant]
     Active Substance: METOPROLOL

REACTIONS (4)
  - Muscle spasms [Recovered/Resolved]
  - Vertigo [Recovered/Resolved]
  - Vision blurred [Recovered/Resolved]
  - Gait disturbance [Recovered/Resolved]

NARRATIVE: CASE EVENT DATE: 20220922
